FAERS Safety Report 17367750 (Version 1)
Quarter: 2020Q1

REPORT INFORMATION
  Report Type: Spontaneous
  Country: GB (occurrence: GB)
  Receive Date: 20200204
  Receipt Date: 20200204
  Transmission Date: 20200409
  Serious: Yes (Other)
  Sender: FDA-Public Use
  Company Number: GB-PFIZER INC-2020044835

PATIENT
  Age: 72 Year
  Sex: Male

DRUGS (2)
  1. DOCETAXEL. [Suspect]
     Active Substance: DOCETAXEL
     Indication: PROSTATE CANCER
     Dosage: UNK, CYCLIC (135 UNK, QCY)
     Route: 042
     Dates: start: 20150619, end: 20150619
  2. DOCETAXEL. [Suspect]
     Active Substance: DOCETAXEL
     Dosage: UNK, CYCLIC (135 UNK, QCY)
     Route: 042
     Dates: start: 20151002, end: 20151002

REACTIONS (5)
  - Neuropathy peripheral [Unknown]
  - Lower respiratory tract infection [Unknown]
  - Constipation [Unknown]
  - Alopecia [Unknown]
  - Fatigue [Unknown]

NARRATIVE: CASE EVENT DATE: 20150731
